FAERS Safety Report 13663511 (Version 2)
Quarter: 2017Q2

REPORT INFORMATION
  Report Type: Spontaneous
  Country: US (occurrence: US)
  Receive Date: 20170619
  Receipt Date: 20170628
  Transmission Date: 20170830
  Serious: No
  Sender: FDA-Public Use
  Company Number: US-PFIZER INC-2017262424

PATIENT
  Age: 63 Year
  Sex: Male
  Weight: 82 kg

DRUGS (2)
  1. VIAGRA [Suspect]
     Active Substance: SILDENAFIL CITRATE
     Indication: ERECTILE DYSFUNCTION
     Dosage: 20 MG, AS NEEDED (APPROXIMATELY ONE HOUR BEFORE POSSIBLE SEXUAL RELATIONS)
  2. VIAGRA [Suspect]
     Active Substance: SILDENAFIL CITRATE
     Dosage: 50 MG, AS NEEDED (APPROXIMATELY ONE HOUR BEFORE POSSIBLE SEXUAL RELATIONS)

REACTIONS (2)
  - Body height decreased [Unknown]
  - Drug ineffective [Unknown]
